FAERS Safety Report 12482898 (Version 5)
Quarter: 2022Q1

REPORT INFORMATION
  Report Type: Report from Study
  Country: CO (occurrence: CO)
  Receive Date: 20160620
  Receipt Date: 20220322
  Transmission Date: 20220423
  Serious: Yes (Life-Threatening, Other)
  Sender: FDA-Public Use
  Company Number: PHHY2016CO012426

PATIENT
  Age: 67 Year
  Sex: Female
  Weight: 67 kg

DRUGS (6)
  1. TASIGNA [Suspect]
     Active Substance: NILOTINIB
     Indication: Chronic myeloid leukaemia
     Dosage: 2 DF (150 MG), Q12H (TOTALLY 600MG)
     Route: 048
     Dates: start: 20131123
  2. TASIGNA [Suspect]
     Active Substance: NILOTINIB
     Dosage: 2 DF (150 MG), Q12H (TOTALLY 600MG)
     Route: 048
  3. TASIGNA [Suspect]
     Active Substance: NILOTINIB
     Dosage: 800 MG, QD (4 200 MG TABLETS)
     Route: 048
  4. TASIGNA [Suspect]
     Active Substance: NILOTINIB
     Dosage: 800 MG, QD
     Route: 048
  5. TASIGNA [Suspect]
     Active Substance: NILOTINIB
     Dosage: UNK, QD
     Route: 048
  6. TASIGNA [Suspect]
     Active Substance: NILOTINIB
     Dosage: 400 MG, Q12H
     Route: 048

REACTIONS (30)
  - Feeling abnormal [Unknown]
  - Self-injurious ideation [Unknown]
  - Chronic myeloid leukaemia recurrent [Unknown]
  - Movement disorder [Unknown]
  - Viral infection [Unknown]
  - Nasal congestion [Unknown]
  - Influenza [Unknown]
  - Burning sensation [Unknown]
  - Gait disturbance [Unknown]
  - Toothache [Unknown]
  - C-reactive protein abnormal [Unknown]
  - Depressed mood [Unknown]
  - Dysstasia [Unknown]
  - Anxiety [Unknown]
  - Dizziness [Unknown]
  - Blood glucose increased [Unknown]
  - Diarrhoea [Unknown]
  - Pain in extremity [Not Recovered/Not Resolved]
  - Fatigue [Unknown]
  - Headache [Unknown]
  - Blood cholesterol increased [Unknown]
  - Arthralgia [Not Recovered/Not Resolved]
  - Pyrexia [Unknown]
  - Illness [Unknown]
  - Nausea [Unknown]
  - Vomiting [Unknown]
  - Weight decreased [Unknown]
  - Malaise [Unknown]
  - Inappropriate schedule of product administration [Unknown]
  - Drug ineffective [Unknown]

NARRATIVE: CASE EVENT DATE: 20150715
